FAERS Safety Report 5078652-5 (Version None)
Quarter: 2006Q3

REPORT INFORMATION
  Report Type: 
  Country: None (occurrence: None)
  Receive Date: 20060810
  Receipt Date: 20060810
  Transmission Date: 20061208
  Serious: Yes (Hospitalization)
  Sender: FDA-Public Use
  Company Number: None

PATIENT
  Age: 32 Year
  Sex: Male
  Weight: 92.9874 kg

DRUGS (1)
  1. LEVAQUIN [Suspect]
     Dosage: 500 MG ONCE A DAY PO
     Route: 048
     Dates: start: 20060808, end: 20060808

REACTIONS (2)
  - PHARYNGEAL OEDEMA [None]
  - URTICARIA [None]
